FAERS Safety Report 14061816 (Version 1)
Quarter: 2017Q4

REPORT INFORMATION
  Report Type: Spontaneous
  Country: DE (occurrence: DE)
  Receive Date: 20171009
  Receipt Date: 20171009
  Transmission Date: 20180321
  Serious: No
  Sender: FDA-Public Use
  Company Number: DE-LUPIN PHARMACEUTICALS INC.-2017-04864

PATIENT
  Age: 38 Year
  Sex: Male

DRUGS (4)
  1. DULOXETIN-HORMOSAN [Suspect]
     Active Substance: DULOXETINE HYDROCHLORIDE
     Indication: HEADACHE
     Dosage: 30 MG AND 60 MG (IN MORNING), QD
     Route: 048
     Dates: start: 20161111, end: 2017
  2. DULOXETIN-HORMOSAN [Suspect]
     Active Substance: DULOXETINE HYDROCHLORIDE
     Indication: DEPRESSED MOOD
  3. DULOXETIN-HORMOSAN [Suspect]
     Active Substance: DULOXETINE HYDROCHLORIDE
     Indication: DEPRESSION
     Dosage: 30 MG AND 60 MG (IN MORNING), QD
     Route: 048
  4. DULOXETIN-HORMOSAN [Suspect]
     Active Substance: DULOXETINE HYDROCHLORIDE
     Indication: APATHY

REACTIONS (2)
  - Wrong technique in product usage process [Unknown]
  - Dysphagia [Recovering/Resolving]

NARRATIVE: CASE EVENT DATE: 20161111
